FAERS Safety Report 9262310 (Version 1)
Quarter: 2013Q2

REPORT INFORMATION
  Report Type: Spontaneous
  Country: JP (occurrence: JP)
  Receive Date: 20130430
  Receipt Date: 20130430
  Transmission Date: 20140414
  Serious: Yes (Hospitalization, Other)
  Sender: FDA-Public Use
  Company Number: JP-009507513-1304JPN016549

PATIENT
  Age: 59 Year
  Sex: Male
  Weight: 70 kg

DRUGS (9)
  1. PEGINTRON [Suspect]
     Indication: CHRONIC HEPATITIS C
     Dosage: 1.5 MICROGRAM PER KILOGRAM, QW
     Route: 058
     Dates: start: 20121016, end: 20130109
  2. REBETOL [Suspect]
     Indication: CHRONIC HEPATITIS C
     Dosage: 800 MG, QD
     Route: 048
     Dates: start: 20121016, end: 20121219
  3. REBETOL [Suspect]
     Dosage: 600 MG, QD
     Route: 048
     Dates: start: 20121219, end: 20130109
  4. REBETOL [Suspect]
     Dosage: 400 MG, QD
     Route: 048
     Dates: start: 20130109, end: 20130112
  5. TELAVIC [Suspect]
     Indication: CHRONIC HEPATITIS C
     Dosage: 1500 MG, QD
     Route: 048
     Dates: start: 20121016, end: 20130109
  6. GLYCYRON [Concomitant]
     Indication: CHRONIC HEPATITIS C
     Dosage: 3 DF, QD
     Route: 048
  7. URSO [Concomitant]
     Indication: CHRONIC HEPATITIS C
     Dosage: 6 DF, QD
     Route: 048
  8. CONIEL [Concomitant]
     Dosage: 2 DF, QD
     Route: 048
  9. DIOVAN [Concomitant]
     Dosage: 80 MG, QD
     Route: 048

REACTIONS (4)
  - Renal failure [Recovering/Resolving]
  - Retinopathy [Recovered/Resolved with Sequelae]
  - Anaemia [Recovering/Resolving]
  - Interstitial lung disease [Recovering/Resolving]
